FAERS Safety Report 20533289 (Version 5)
Quarter: 2022Q2

REPORT INFORMATION
  Report Type: Report from Study
  Country: FR (occurrence: FR)
  Receive Date: 20220301
  Receipt Date: 20220505
  Transmission Date: 20220720
  Serious: Yes (Hospitalization, Other)
  Sender: FDA-Public Use
  Company Number: FR-BRISTOL-MYERS SQUIBB COMPANY-BMS-2022-027093

PATIENT
  Sex: Male
  Weight: 93 kg

DRUGS (8)
  1. NIVOLUMAB [Suspect]
     Active Substance: NIVOLUMAB
     Indication: Squamous cell carcinoma of head and neck
     Dosage: 240 MILLIGRAM (LEAD IN PHASE (D14-D10)
     Route: 065
     Dates: start: 20220110
  2. NIVOLUMAB [Suspect]
     Active Substance: NIVOLUMAB
     Dosage: 360 MILLIGRAM (CYCLE 1 DAY 1)
     Route: 065
     Dates: start: 20220124
  3. NIVOLUMAB [Suspect]
     Active Substance: NIVOLUMAB
     Dosage: 360 MILLIGRAM (CYCLE 2 DAY 22)
     Route: 065
     Dates: start: 20220214, end: 20220218
  4. CISPLATIN [Suspect]
     Active Substance: CISPLATIN
     Indication: Squamous cell carcinoma of head and neck
     Dosage: 100 MG/M2 = 200 MILLIGRAM (CYCLE 1 DAY 1)
     Route: 065
     Dates: start: 20220124
  5. CISPLATIN [Suspect]
     Active Substance: CISPLATIN
     Dosage: 100 MG/M2 = 200 MG (CYCLE 2 DAY 22)
     Route: 065
     Dates: start: 20220214, end: 20220218
  6. NIVOLUMAB [Suspect]
     Active Substance: NIVOLUMAB
     Dosage: 360 MILLIGRAM (CYCLE 1 DAY 1)
     Route: 065
     Dates: start: 20220124
  7. NIVOLUMAB [Suspect]
     Active Substance: NIVOLUMAB
     Dosage: 360 MILLIGRAM (CYCLE 2 DAY 22)
     Route: 065
     Dates: start: 20220214, end: 20220218
  8. AERIUS (DESLORATADINE) [Concomitant]
     Active Substance: DESLORATADINE
     Indication: Hypersensitivity
     Dosage: 5 MILLIGRAM
     Route: 048
     Dates: start: 20220215

REACTIONS (6)
  - Leukopenia [Unknown]
  - Tubulointerstitial nephritis [Not Recovered/Not Resolved]
  - Hypokalaemia [Not Recovered/Not Resolved]
  - Acute kidney injury [Recovered/Resolved]
  - Neutropenia [Unknown]
  - Renal tubular necrosis [Not Recovered/Not Resolved]

NARRATIVE: CASE EVENT DATE: 20220217
